FAERS Safety Report 6305556-X (Version None)
Quarter: 2009Q3

REPORT INFORMATION
  Report Type: 
  Country: None (occurrence: None)
  Receive Date: 20090807
  Receipt Date: 20090724
  Transmission Date: 20100115
  Serious: Yes (Life-Threatening)
  Sender: FDA-Public Use
  Company Number: DSJ-2009-08149

PATIENT
  Age: 83 Year
  Sex: Male
  Weight: 63 kg

DRUGS (13)
  1. OLMESARTAN MEDOXOMIL [Suspect]
     Indication: HYPERTENSION
     Dosage: 20 MG (20 MG,1 IN 1 D),PER ORAL ; 40 MG (40 MG,1 IN1 D),PER ORAL
     Route: 048
     Dates: start: 20090611, end: 20090618
  2. OLMESARTAN MEDOXOMIL [Suspect]
     Indication: HYPERTENSION
     Dosage: 20 MG (20 MG,1 IN 1 D),PER ORAL ; 40 MG (40 MG,1 IN1 D),PER ORAL
     Route: 048
     Dates: start: 20090619, end: 20090622
  3. NORVASC [Concomitant]
  4. OPALMON (LIMAPROST) (LIMAPROST) [Concomitant]
  5. LASIX [Concomitant]
  6. MILLIS (GLYCERYL TRINITRATE) (POULTICE OR PATCH) (GLYCERYL TRINITRATE) [Concomitant]
  7. EUGLUCON (GLIBENCLAMIDE) (TABLET) (GLIBENCLAMIDE) [Concomitant]
  8. BASEN OD (VOGLIBOSE) (TABLET) (VOGLIBOSE) [Concomitant]
  9. MELBIN (METFORMIN HYDROCHLORIDE) (AMBROXOL HYDROCHLORIDE) [Concomitant]
  10. MAGMITT (MAGNESIUM OXIDE) [Concomitant]
  11. GLIMICRON (GLICLAZIDE) (TABLET) (GLICLAZIDE) [Concomitant]
  12. MUCOSAL-L(AMBROXOL HYDROCHLORIDE) [Concomitant]
  13. SENNOSIDE (SENNISIDE A+B CALCIUM) [Concomitant]

REACTIONS (4)
  - BLOOD GLUCOSE INCREASED [None]
  - BLOOD PRESSURE SYSTOLIC INCREASED [None]
  - DRUG EFFECT DECREASED [None]
  - HYPOGLYCAEMIA [None]
